FAERS Safety Report 6971263-3 (Version None)
Quarter: 2010Q3

REPORT INFORMATION
  Report Type: 
  Country: None (occurrence: None)
  Receive Date: 20100908
  Receipt Date: 20100901
  Transmission Date: 20110219
  Serious: Yes (Hospitalization)
  Sender: FDA-Public Use
  Company Number: US-BRISTOL-MYERS SQUIBB COMPANY-15263346

PATIENT
  Age: 52 Year
  Sex: Female

DRUGS (1)
  1. KENALOG [Suspect]
     Indication: NECK PAIN
     Dosage: INJECTION

REACTIONS (1)
  - SYRINGOMYELIA [None]
